FAERS Safety Report 19284064 (Version 3)
Quarter: 2021Q3

REPORT INFORMATION
  Report Type: Spontaneous
  Country: US (occurrence: US)
  Receive Date: 20210521
  Receipt Date: 20210706
  Transmission Date: 20211014
  Serious: No
  Sender: FDA-Public Use
  Company Number: US-GLAXOSMITHKLINE-US2021104590

PATIENT
  Sex: Female

DRUGS (1)
  1. NUCALA [Suspect]
     Active Substance: MEPOLIZUMAB
     Indication: EOSINOPHILIC GRANULOMATOSIS WITH POLYANGIITIS
     Dosage: 1 DF, CYC
     Dates: start: 202101

REACTIONS (4)
  - Peripheral swelling [Not Recovered/Not Resolved]
  - Product complaint [Unknown]
  - Accidental exposure to product [Unknown]
  - Exposure via skin contact [Unknown]
